FAERS Safety Report 4306883-8 (Version None)
Quarter: 2004Q1

REPORT INFORMATION
  Report Type: 
  Country: None (occurrence: None)
  Receive Date: 20040227
  Receipt Date: 20040216
  Transmission Date: 20041129
  Serious: Yes (Disabling)
  Sender: FDA-Public Use
  Company Number: NZ-GLAXOSMITHKLINE-B0323439A

PATIENT
  Age: 48 Year
  Sex: Female

DRUGS (2)
  1. FLIXOTIDE [Suspect]
     Indication: ASTHMA
     Dosage: 250MG TWICE PER DAY
     Route: 055
     Dates: start: 20030812, end: 20040210
  2. VENTOLIN [Concomitant]
     Dosage: 200MCG TWICE PER DAY
     Route: 055

REACTIONS (5)
  - CATARACT [None]
  - EYE PAIN [None]
  - KERATOCONJUNCTIVITIS SICCA [None]
  - OPTIC NERVE INJURY [None]
  - RETINAL DISORDER [None]
